FAERS Safety Report 5861405-5 (Version None)
Quarter: 2008Q3

REPORT INFORMATION
  Report Type: 
  Country: None (occurrence: None)
  Receive Date: 20080827
  Receipt Date: 20080424
  Transmission Date: 20090109
  Serious: No
  Sender: FDA-Public Use
  Company Number: US-ABBOTT-08P-163-0448945-00

PATIENT
  Sex: Female
  Weight: 64.468 kg

DRUGS (1)
  1. COATED PDS [Suspect]
     Indication: BLOOD CHOLESTEROL INCREASED
     Dosage: 500MG AT BEDTIME
     Route: 048
     Dates: start: 20080328, end: 20080330

REACTIONS (6)
  - BLISTER [None]
  - BURNING SENSATION [None]
  - ERYTHEMA [None]
  - OEDEMA PERIPHERAL [None]
  - PRURITUS GENERALISED [None]
  - TREMOR [None]
